FAERS Safety Report 13092091 (Version 3)
Quarter: 2018Q2

REPORT INFORMATION
  Report Type: Spontaneous
  Country: CH (occurrence: CH)
  Receive Date: 20170106
  Receipt Date: 20180417
  Transmission Date: 20180711
  Serious: Yes (Other)
  Sender: FDA-Public Use
  Company Number: CH-AMGEN-CHESP2017001138

PATIENT
  Age: 80 Year
  Sex: Female

DRUGS (1)
  1. PROLIA [Suspect]
     Active Substance: DENOSUMAB
     Indication: OSTEOPOROSIS
     Dosage: UNK
     Route: 065
     Dates: start: 20160519

REACTIONS (7)
  - Hyperhidrosis [Unknown]
  - Bone pain [Unknown]
  - Tooth disorder [Unknown]
  - Kidney infection [Unknown]
  - Body temperature increased [Unknown]
  - Myalgia [Unknown]
  - Oral pain [Unknown]

NARRATIVE: CASE EVENT DATE: 2016
